FAERS Safety Report 9531273 (Version 1)
Quarter: 2013Q3

REPORT INFORMATION
  Report Type: Report from Study
  Country: CA (occurrence: CA)
  Receive Date: 20130918
  Receipt Date: 20130918
  Transmission Date: 20140515
  Serious: Yes (Other)
  Sender: FDA-Public Use
  Company Number: CA-JNJFOC-20130903851

PATIENT
  Age: 55 Year
  Sex: Female

DRUGS (1)
  1. STELARA [Suspect]
     Indication: PSORIASIS
     Dosage: 0, ONCE IN 4 WEEKS AND THEN ONCE IN 12 WEEKS
     Route: 058
     Dates: start: 20130815

REACTIONS (1)
  - Abdominal pain upper [Not Recovered/Not Resolved]
